FAERS Safety Report 13613317 (Version 9)
Quarter: 2018Q2

REPORT INFORMATION
  Report Type: Spontaneous
  Country: US (occurrence: US)
  Receive Date: 20170605
  Receipt Date: 20180531
  Transmission Date: 20180711
  Serious: Yes (Hospitalization, Other)
  Sender: FDA-Public Use
  Company Number: US-ACTELION-A-US2017-154708

PATIENT
  Age: 40 Year
  Sex: Female
  Weight: 56.69 kg

DRUGS (4)
  1. REMODULIN [Concomitant]
     Active Substance: TREPROSTINIL
  2. OPSUMIT [Suspect]
     Active Substance: MACITENTAN
     Dosage: 10 MG, QD
     Route: 048
  3. OPSUMIT [Suspect]
     Active Substance: MACITENTAN
     Indication: PULMONARY ARTERIAL HYPERTENSION
     Dosage: 10 MG, QD
     Route: 048
  4. COUMADIN [Concomitant]
     Active Substance: WARFARIN SODIUM

REACTIONS (13)
  - Abscess [Unknown]
  - Nausea [Unknown]
  - Pyrexia [Unknown]
  - Fall [Unknown]
  - Disease progression [Unknown]
  - Vomiting [Unknown]
  - Hip fracture [Unknown]
  - Dyspnoea [Unknown]
  - Osteomyelitis [Unknown]
  - Influenza like illness [Unknown]
  - Pulmonary hypertension [Unknown]
  - Malaise [Unknown]
  - Diarrhoea [Unknown]

NARRATIVE: CASE EVENT DATE: 20180216
